FAERS Safety Report 4756479-9 (Version None)
Quarter: 2005Q3

REPORT INFORMATION
  Report Type: 
  Country: None (occurrence: None)
  Receive Date: 20050830
  Receipt Date: 20050708
  Transmission Date: 20060218
  Serious: Yes (Life-Threatening, Hospitalization, Other)
  Sender: FDA-Public Use
  Company Number: US-GLAXOSMITHKLINE-A0565590A

PATIENT
  Age: 37 Year
  Sex: Male

DRUGS (2)
  1. WELLBUTRIN XL [Suspect]
     Indication: DEPRESSION
     Route: 048
  2. SEROQUEL [Concomitant]
     Indication: DEPRESSION
     Dosage: 100MG THREE TIMES PER DAY
     Route: 048

REACTIONS (1)
  - GRAND MAL CONVULSION [None]
